FAERS Safety Report 9266209 (Version 1)
Quarter: 2013Q2

REPORT INFORMATION
  Report Type: Spontaneous
  Country: US (occurrence: US)
  Receive Date: 20130502
  Receipt Date: 20130502
  Transmission Date: 20140414
  Serious: No
  Sender: FDA-Public Use
  Company Number: US-009507513-1304USA017373

PATIENT
  Sex: Female

DRUGS (4)
  1. IMPLANON [Suspect]
     Dosage: UNK
     Route: 059
     Dates: start: 200804
  2. IMPLANON [Suspect]
     Dosage: UNK
     Route: 059
  3. DOXYCYCLINE [Concomitant]
  4. WELLBUTRIN [Concomitant]

REACTIONS (5)
  - Amenorrhoea [Not Recovered/Not Resolved]
  - Back pain [Unknown]
  - Breast enlargement [Unknown]
  - Amenorrhoea [Unknown]
  - Incorrect drug administration duration [Unknown]
